FAERS Safety Report 5358464-5 (Version None)
Quarter: 2007Q2

REPORT INFORMATION
  Report Type: 
  Country: None (occurrence: None)
  Receive Date: 20070601
  Receipt Date: 20070316
  Transmission Date: 20071010
  Serious: No
  Sender: FDA-Public Use
  Company Number: PHEH2007US03204

PATIENT
  Sex: Male

DRUGS (5)
  1. ENABLEX [Suspect]
     Indication: HYPERTONIC BLADDER
     Dosage: 7.5 MG ; 15 MG : QD, ORAL
     Route: 048
     Dates: start: 20070306, end: 20070313
  2. COUMADIN [Concomitant]
  3. FUROSEMIDE [Concomitant]
  4. COREG [Concomitant]
  5. WARFARIN SODIUM [Concomitant]

REACTIONS (1)
  - DYSGEUSIA [None]
